FAERS Safety Report 13882647 (Version 3)
Quarter: 2020Q2

REPORT INFORMATION
  Report Type: Spontaneous
  Country: FR (occurrence: FR)
  Receive Date: 20170818
  Receipt Date: 20200627
  Transmission Date: 20200713
  Serious: Yes (Death, Other)
  Sender: FDA-Public Use
  Company Number: FR-AMGEN-FRASP2017126014

PATIENT
  Age: 15 Year
  Sex: Male

DRUGS (2)
  1. BLINATUMOMAB [Suspect]
     Active Substance: BLINATUMOMAB
     Indication: B PRECURSOR TYPE ACUTE LEUKAEMIA
     Dosage: 5 MUG/M2, QD FIRST 7 DAYS
     Route: 065
  2. BLINATUMOMAB [Suspect]
     Active Substance: BLINATUMOMAB
     Dosage: 15 MUG/M2, QD, DAY 8-29
     Route: 065

REACTIONS (2)
  - Acute monocytic leukaemia [Fatal]
  - Off label use [Unknown]
